FAERS Safety Report 9698613 (Version 2)
Quarter: 2013Q4

REPORT INFORMATION
  Report Type: Spontaneous
  Country: DE (occurrence: DE)
  Receive Date: 20131120
  Receipt Date: 20131202
  Transmission Date: 20140711
  Serious: Yes (Life-Threatening, Hospitalization)
  Sender: FDA-Public Use
  Company Number: DE-GLAXOSMITHKLINE-D0081851A

PATIENT
  Age: 21 Year
  Sex: Female
  Weight: 105 kg

DRUGS (3)
  1. REVOLADE [Suspect]
     Indication: IMMUNE THROMBOCYTOPENIC PURPURA
     Dosage: 50MG PER DAY
     Route: 048
     Dates: start: 20130904
  2. PREDNISOLON [Concomitant]
     Dosage: 200MG PER DAY
     Route: 065
  3. IMMUNOGLOBULINS [Concomitant]
     Dosage: 40G PER DAY
     Route: 042

REACTIONS (2)
  - Pulmonary embolism [Recovered/Resolved]
  - Deep vein thrombosis [Recovered/Resolved]
